FAERS Safety Report 5848847-9 (Version None)
Quarter: 2008Q3

REPORT INFORMATION
  Report Type: 
  Country: None (occurrence: None)
  Receive Date: 20080818
  Receipt Date: 20080806
  Transmission Date: 20090109
  Serious: Yes (Other)
  Sender: FDA-Public Use
  Company Number: IN-PFIZER INC-2008052284

PATIENT
  Age: 60 Year
  Sex: Female

DRUGS (4)
  1. SUTENT [Suspect]
     Indication: RENAL CELL CARCINOMA
     Route: 048
  2. SUTENT [Suspect]
     Route: 048
  3. THIAZIDES [Concomitant]
     Indication: HYPERTENSION
  4. TELMISARTAN [Concomitant]
     Indication: HYPERTENSION
     Route: 048

REACTIONS (4)
  - FATIGUE [None]
  - HYPERTENSION [None]
  - NEUROPATHY PERIPHERAL [None]
  - PALMAR-PLANTAR ERYTHRODYSAESTHESIA SYNDROME [None]
